FAERS Safety Report 9699075 (Version 1)
Quarter: 2013Q4

REPORT INFORMATION
  Report Type: Spontaneous
  Country: US (occurrence: None)
  Receive Date: 20131105
  Receipt Date: 20131105
  Transmission Date: 20140711
  Serious: Yes (Hospitalization)
  Sender: FDA-Public Use
  Company Number: BTG00089

PATIENT
  Age: 70 Year
  Sex: Male

DRUGS (3)
  1. DIGIFAB [Suspect]
     Indication: TOXICITY TO VARIOUS AGENTS
  2. DIGOXIN (DIGOXIN) [Suspect]
     Indication: PRODUCT USED FOR UNKNOWN INDICATION
  3. DOPAMINE (DOPAMINE HYDROCHLORIDE) [Concomitant]

REACTIONS (6)
  - Hypotension [None]
  - Atrial fibrillation [None]
  - Drug effect decreased [None]
  - Toxicity to various agents [None]
  - Renal failure acute [None]
  - Continuous haemodiafiltration [None]
